FAERS Safety Report 8457259-3 (Version None)
Quarter: 2012Q2

REPORT INFORMATION
  Report Type: 
  Country: None (occurrence: None)
  Receive Date: 20120621
  Receipt Date: 20120619
  Transmission Date: 20120825
  Serious: Yes (Life-Threatening)
  Sender: FDA-Public Use
  Company Number: NL-ROCHE-1073063

PATIENT
  Sex: Male
  Weight: 82 kg

DRUGS (9)
  1. MABTHERA [Suspect]
     Indication: MALIGNANT LYMPHOID NEOPLASM
     Dosage: LAST DOSE PRIOR TO THE SAE ON 29/APR/2012
     Route: 042
     Dates: start: 20120425
  2. OMEPRAZOLE [Concomitant]
     Route: 048
     Dates: end: 20120501
  3. HYDROCHLOROTHIAZIDE [Concomitant]
     Route: 048
     Dates: end: 20120501
  4. CYCLOPHOSPHAMIDE [Suspect]
     Indication: MALIGNANT LYMPHOID NEOPLASM
     Dosage: LAST DOSE PRIOR TO THE SAE ON 28/APR/2012
     Route: 042
     Dates: start: 20120425
  5. VINCRISTINE [Suspect]
     Indication: MALIGNANT LYMPHOID NEOPLASM
     Dosage: LAST DOSE PRIOR TO THE SAE ON 28/APR/2012
     Route: 042
     Dates: start: 20120425
  6. PREDNISONE [Suspect]
     Indication: MALIGNANT LYMPHOID NEOPLASM
     Dosage: LAST DOSE PRIOR TO THE SAE ON 28/APR/2012
     Route: 048
     Dates: start: 20120425
  7. FILGRASTIM [Suspect]
     Indication: MALIGNANT LYMPHOID NEOPLASM
     Dosage: LAST DOSE PRIOR TO THE SAE ON 26/APR/2012
     Route: 058
     Dates: start: 20120426
  8. ENALAPRIL MALEATE [Concomitant]
     Route: 048
     Dates: end: 20120501
  9. DOXORUBICIN HCL [Suspect]
     Indication: MALIGNANT LYMPHOID NEOPLASM
     Dosage: LAST DOSE PRIOR TO THE SAE ON 28/APR/2012
     Route: 042
     Dates: start: 20120425

REACTIONS (4)
  - FALL [None]
  - NEOPLASM PROGRESSION [None]
  - DIFFUSE LARGE B-CELL LYMPHOMA [None]
  - PULMONARY EMBOLISM [None]
